FAERS Safety Report 5813666-6 (Version None)
Quarter: 2008Q3

REPORT INFORMATION
  Report Type: 
  Country: None (occurrence: None)
  Receive Date: 20080717
  Receipt Date: 20080716
  Transmission Date: 20090109
  Serious: Yes (Hospitalization)
  Sender: FDA-Public Use
  Company Number: B0526073A

PATIENT
  Age: 55 Year
  Sex: Male

DRUGS (8)
  1. KIVEXA [Suspect]
     Indication: HIV INFECTION
     Route: 048
     Dates: start: 20071222, end: 20080301
  2. TRIZIVIR [Suspect]
     Indication: HIV INFECTION
     Route: 065
     Dates: start: 20080304
  3. RALTEGRAVIR [Suspect]
     Indication: HIV INFECTION
     Route: 048
     Dates: start: 20080209
  4. VIRAMUNE [Suspect]
     Indication: HIV INFECTION
     Route: 048
     Dates: start: 20080209, end: 20080301
  5. BACTRIM [Suspect]
     Indication: HIV INFECTION
     Route: 048
     Dates: start: 20071201
  6. KALETRA [Concomitant]
     Indication: HIV INFECTION
     Route: 065
     Dates: start: 20071222, end: 20080209
  7. WELLVONE [Concomitant]
     Route: 065
  8. PENTACARINAT [Concomitant]

REACTIONS (16)
  - CHOLESTASIS [None]
  - CYTOMEGALOVIRUS CHORIORETINITIS [None]
  - DIARRHOEA [None]
  - DRUG RASH WITH EOSINOPHILIA AND SYSTEMIC SYMPTOMS [None]
  - DYSGEUSIA [None]
  - ENTHESOPATHY [None]
  - EOSINOPHILIA [None]
  - HEPATOCELLULAR INJURY [None]
  - HYPOKALAEMIA [None]
  - JOINT EFFUSION [None]
  - PNEUMOCYSTIS JIROVECI PNEUMONIA [None]
  - PYREXIA [None]
  - RASH GENERALISED [None]
  - RASH MACULO-PAPULAR [None]
  - TENDONITIS [None]
  - WEIGHT DECREASED [None]
